FAERS Safety Report 4696031-7 (Version None)
Quarter: 2005Q2

REPORT INFORMATION
  Report Type: 
  Country: None (occurrence: None)
  Receive Date: 20050621
  Receipt Date: 20050613
  Transmission Date: 20051028
  Serious: Yes (Hospitalization)
  Sender: FDA-Public Use
  Company Number: JP-GLAXOSMITHKLINE-B0384739A

PATIENT
  Age: 68 Year
  Sex: Male

DRUGS (2)
  1. VALTREX [Suspect]
     Indication: HERPES ZOSTER
     Dosage: 1000MG THREE TIMES PER DAY
     Route: 048
     Dates: start: 20050603, end: 20050604
  2. RINDERON [Suspect]
     Dosage: 3TAB PER DAY
     Route: 048

REACTIONS (3)
  - EUPHORIC MOOD [None]
  - HEADACHE [None]
  - NERVOUS SYSTEM DISORDER [None]
